FAERS Safety Report 23611087 (Version 1)
Quarter: 2024Q1

REPORT INFORMATION
  Report Type: Spontaneous
  Country: DE (occurrence: DE)
  Receive Date: 20240308
  Receipt Date: 20240308
  Transmission Date: 20240410
  Serious: Yes (Death, Life-Threatening, Hospitalization, Other)
  Sender: FDA-Public Use
  Company Number: DE-OPELLA-2024OHG000697

PATIENT
  Age: 30 Year
  Sex: Female

DRUGS (10)
  1. AZATHIOPRINE [Suspect]
     Active Substance: AZATHIOPRINE
     Indication: Colitis ulcerative
     Route: 065
     Dates: start: 202001
  2. DEXAMETHASONE [Suspect]
     Active Substance: DEXAMETHASONE
     Indication: Haemophagocytic lymphohistiocytosis
     Route: 065
  3. METAMIZOLE SODIUM [Suspect]
     Active Substance: METAMIZOLE SODIUM
     Indication: Pyrexia
     Dosage: AT LEAST A 5 ML AND A 10 ML BOTTLE WHERE USED ADDING UP TO 35 G OF METAMIZOLE
     Route: 065
     Dates: start: 2020
  4. METAMIZOLE SODIUM [Suspect]
     Active Substance: METAMIZOLE SODIUM
     Indication: Diarrhoea
  5. METAMIZOLE SODIUM [Suspect]
     Active Substance: METAMIZOLE SODIUM
     Indication: Self-medication
  6. METAMIZOLE SODIUM [Suspect]
     Active Substance: METAMIZOLE SODIUM
     Indication: Vomiting
  7. PREDNISOLONE [Suspect]
     Active Substance: PREDNISOLONE
     Dosage: INCREASED DOSE OF 150 MG/DAY
     Route: 065
  8. PREDNISOLONE [Suspect]
     Active Substance: PREDNISOLONE
     Indication: Colitis ulcerative
     Dosage: 2.5 MG PER DAY AT 6 WEEKS AFTER ADMISSION
     Route: 065
  9. PREDNISOLONE [Suspect]
     Active Substance: PREDNISOLONE
     Dosage: 70 MG, QD AT ADMISSION
     Route: 065
     Dates: start: 202001
  10. PREDNISOLONE [Suspect]
     Active Substance: PREDNISOLONE
     Dosage: REPEATED RELAPSES DURING ATTEMPTS TO TAPER HER DOSAGE
     Route: 065

REACTIONS (29)
  - Multiple organ dysfunction syndrome [Fatal]
  - Bronchial haemorrhage [Fatal]
  - Systemic mycosis [Fatal]
  - Immune reconstitution inflammatory syndrome [Fatal]
  - Fungal infection [Fatal]
  - Skin necrosis [Fatal]
  - Pneumonia fungal [Fatal]
  - Acute kidney injury [Fatal]
  - Pyrexia [Unknown]
  - Tachycardia [Unknown]
  - Abdominal lymphadenopathy [Unknown]
  - Abdominal distension [Unknown]
  - Splenomegaly [Unknown]
  - Pneumothorax spontaneous [Recovered/Resolved]
  - Cytomegalovirus infection [Unknown]
  - Cytopenia [Unknown]
  - Aspergillus infection [Unknown]
  - Colitis [Unknown]
  - Dyspnoea [Unknown]
  - Neutropenic sepsis [Unknown]
  - Overdose [Unknown]
  - Hepatosplenomegaly [Unknown]
  - Haemophagocytic lymphohistiocytosis [Unknown]
  - Asthenia [Unknown]
  - Rebound effect [Unknown]
  - Colitis ulcerative [Unknown]
  - Agranulocytosis [Unknown]
  - Dizziness [Unknown]
  - Self-medication [Unknown]

NARRATIVE: CASE EVENT DATE: 20200101
